FAERS Safety Report 9676184 (Version 1)
Quarter: 2013Q4

REPORT INFORMATION
  Report Type: Spontaneous
  Country: GB (occurrence: GB)
  Receive Date: 20131107
  Receipt Date: 20131107
  Transmission Date: 20140711
  Serious: Yes (Other)
  Sender: FDA-Public Use
  Company Number: ALCN2013GB005558

PATIENT
  Sex: Male

DRUGS (1)
  1. FLUORESCITE [Suspect]
     Indication: INTRAOCULAR PRESSURE TEST
     Dosage: UNK
     Dates: start: 201304

REACTIONS (3)
  - Visual impairment [Recovered/Resolved]
  - Eye discharge [Not Recovered/Not Resolved]
  - Product colour issue [Unknown]
